FAERS Safety Report 8826411 (Version 1)
Quarter: 2012Q4

REPORT INFORMATION
  Report Type: 
  Country: US (occurrence: US)
  Receive Date: 20121005
  Receipt Date: 20121005
  Transmission Date: 20130627
  Serious: No
  Sender: FDA-Public Use
  Company Number: US-BAUSCH-2012BL004145

PATIENT
  Age: 73 Year
  Sex: Female

DRUGS (1)
  1. ZIRGAN [Suspect]
     Indication: KERATITIS HERPETIC
     Route: 047
     Dates: start: 20120502, end: 20120611

REACTIONS (3)
  - Foreign body sensation in eyes [Recovered/Resolved]
  - Ocular hyperaemia [Recovered/Resolved]
  - Eye swelling [Recovered/Resolved]
